FAERS Safety Report 16234411 (Version 2)
Quarter: 2019Q3

REPORT INFORMATION
  Report Type: Spontaneous
  Country: FR (occurrence: FR)
  Receive Date: 20190424
  Receipt Date: 20190923
  Transmission Date: 20191004
  Serious: Yes (Hospitalization, Other)
  Sender: FDA-Public Use
  Company Number: FR-MYLANLABS-2019M1037036

PATIENT
  Age: 6 Day
  Sex: Male

DRUGS (7)
  1. ACICLOVIR MYLAN [Suspect]
     Active Substance: ACYCLOVIR
     Indication: ANTIVIRAL PROPHYLAXIS
     Dosage: 33 MILLIGRAM, QD
     Route: 042
     Dates: start: 20181013, end: 20181020
  2. PARACETAMOL [Concomitant]
     Active Substance: ACETAMINOPHEN
     Dosage: 10 DOSAGE FORM 10 MG/ML,
     Dates: start: 20181013
  3. CAFFEINE CITRATE. [Suspect]
     Active Substance: CAFFEINE CITRATE
     Indication: PROPHYLAXIS
     Dosage: 4.4 MILLIGRAM, QD
     Route: 042
     Dates: start: 20181013
  4. UVESTEROL VITAMINE A D E C [Concomitant]
     Indication: PRODUCT USED FOR UNKNOWN INDICATION
     Dosage: UNK
     Route: 048
     Dates: start: 20181013
  5. AMIKACINE MYLAN [Suspect]
     Active Substance: AMIKACIN
     Indication: ANTIBIOTIC PROPHYLAXIS
     Dosage: 33 MILLIGRAM, QD
     Route: 042
     Dates: start: 20181013, end: 20181020
  6. PARACETAMOL [Concomitant]
     Active Substance: ACETAMINOPHEN
     Indication: PRODUCT USED FOR UNKNOWN INDICATION
     Dosage: 18 MILLIGRAM, BID
     Route: 042
     Dates: start: 20181013
  7. VITAMIN K [Concomitant]
     Active Substance: PHYTONADIONE
     Indication: PRODUCT USED FOR UNKNOWN INDICATION
     Dosage: 0.7 MILLIGRAM, QD
     Route: 042
     Dates: start: 20181013, end: 20181016

REACTIONS (1)
  - Necrotising colitis [Recovered/Resolved with Sequelae]

NARRATIVE: CASE EVENT DATE: 20181019
